FAERS Safety Report 5097623-6 (Version None)
Quarter: 2006Q3

REPORT INFORMATION
  Report Type: 
  Country: None (occurrence: None)
  Receive Date: 20060901
  Receipt Date: 20060817
  Transmission Date: 20061208
  Serious: Yes (Death)
  Sender: FDA-Public Use
  Company Number: 2006S1007806

PATIENT
  Age: 79 Year
  Sex: Male

DRUGS (16)
  1. CLOZAPINE [Suspect]
     Dosage: 100 MG; BID; PO
     Route: 048
     Dates: start: 20040101, end: 20060101
  2. MORPHINE (CON.) [Concomitant]
  3. LORAZEPAM (CON.) [Concomitant]
  4. HYOSCYAMINE (CON.) [Concomitant]
  5. LEVOFLOXACIN (CON.) [Concomitant]
  6. TAMSULOSIN (CON.) [Concomitant]
  7. CLOPIDOGREL (CON.) [Concomitant]
  8. SALMETEROL/FLUTICASONPROPIONAAT (CON.) [Concomitant]
  9. MEDROXYPROGESTERONE (CON.) [Concomitant]
  10. AMLODIPINE (CON.) [Concomitant]
  11. FENTANYL (CON.) [Concomitant]
  12. RISPERDAL-CONSTA (CON.) [Concomitant]
  13. LEVOTHYROXINE (CON.) [Concomitant]
  14. ALBUTEROL SULFATE W/IPRATROPIUM BROMIDE (CON.) [Concomitant]
  15. VALPROATE SEMISODIUM (CON.) [Concomitant]
  16. CARBIDOPA W/LEVODOPA (CON.) [Concomitant]

REACTIONS (1)
  - DEATH [None]
